FAERS Safety Report 4381707-1 (Version None)
Quarter: 2004Q2

REPORT INFORMATION
  Report Type: 
  Country: None (occurrence: None)
  Receive Date: 20040615
  Receipt Date: 20040602
  Transmission Date: 20050107
  Serious: Yes (Death)
  Sender: FDA-Public Use
  Company Number: US-JNJFOC-20040600991

PATIENT
  Sex: Female

DRUGS (2)
  1. DURAGESIC [Suspect]
     Indication: POST PROCEDURAL PAIN
     Dosage: 50 UG/HR, TRANSDERMAL  : 100 UG/HR, TRANSDERMAL
     Route: 062
     Dates: start: 20010101, end: 20010101
  2. DURAGESIC [Suspect]
     Indication: POST PROCEDURAL PAIN
     Dosage: 50 UG/HR, TRANSDERMAL  : 100 UG/HR, TRANSDERMAL
     Route: 062
     Dates: start: 20010101, end: 20010101

REACTIONS (1)
  - DEATH [None]
